FAERS Safety Report 6206690-5 (Version None)
Quarter: 2009Q2

REPORT INFORMATION
  Report Type: 
  Country: None (occurrence: None)
  Receive Date: 20090528
  Receipt Date: 20090520
  Transmission Date: 20091009
  Serious: Yes (Death)
  Sender: FDA-Public Use
  Company Number: JP-WYE-H08632809

PATIENT
  Sex: Male
  Weight: 62 kg

DRUGS (22)
  1. ZOSYN [Suspect]
     Indication: PNEUMONIA
     Route: 041
     Dates: start: 20090219, end: 20090305
  2. LOXONIN [Concomitant]
     Indication: CANCER PAIN
     Route: 048
     Dates: start: 20080621, end: 20090308
  3. SENNARIDE [Concomitant]
     Indication: CONSTIPATION
     Route: 048
     Dates: start: 20080609, end: 20090314
  4. TRIAZOLAM [Concomitant]
     Indication: INSOMNIA
     Route: 048
     Dates: start: 20080618, end: 20090314
  5. DIGOXIN [Concomitant]
     Indication: ATRIAL FIBRILLATION
     Route: 048
     Dates: start: 20080621, end: 20090312
  6. MUCOSTA [Concomitant]
     Indication: GASTRIC ULCER
     Route: 048
     Dates: start: 20080621, end: 20090308
  7. MUCOTRON [Concomitant]
     Indication: BRONCHITIS CHRONIC
     Route: 048
     Dates: start: 20080621, end: 20090308
  8. MAGNESIUM OXIDE [Concomitant]
     Indication: CONSTIPATION
     Route: 048
     Dates: start: 20080627, end: 20090314
  9. DIOVAN [Concomitant]
     Indication: HYPERTENSION
     Route: 048
     Dates: start: 20080724, end: 20090304
  10. PRIMPERAN [Concomitant]
     Indication: VOMITING
     Route: 048
     Dates: start: 20081119, end: 20090308
  11. OMEPRAL [Concomitant]
     Indication: GASTRIC ULCER
     Route: 048
     Dates: start: 20081119, end: 20090308
  12. HARNAL [Concomitant]
     Indication: BENIGN PROSTATIC HYPERPLASIA
     Route: 048
     Dates: start: 20081120, end: 20090308
  13. STOMIN A [Concomitant]
     Indication: TINNITUS
     Dosage: 6 TABLETS DAILY
     Route: 048
     Dates: start: 20081121, end: 20090314
  14. NICERGOLINE [Concomitant]
     Indication: CEREBRAL INFARCTION
     Route: 048
     Dates: start: 20081121, end: 20090314
  15. MUCOSOLVAN [Concomitant]
     Indication: BRONCHITIS CHRONIC
     Route: 048
     Dates: start: 20081127, end: 20090308
  16. RIZE [Concomitant]
     Indication: ANXIETY DISORDER
     Route: 048
     Dates: start: 20081202, end: 20090308
  17. BUP-4 [Concomitant]
     Indication: BENIGN PROSTATIC HYPERPLASIA
     Route: 048
     Dates: start: 20090107, end: 20090308
  18. DECADRON [Concomitant]
     Indication: CANCER PAIN
     Route: 048
     Dates: start: 20090120, end: 20090308
  19. GASTROM [Concomitant]
     Indication: GASTRIC ULCER
     Route: 048
     Dates: start: 20090214, end: 20090314
  20. LASIX [Concomitant]
     Indication: OEDEMA
     Route: 048
     Dates: start: 20090304, end: 20090310
  21. LAC B [Concomitant]
     Indication: DIARRHOEA
     Route: 048
     Dates: start: 20090304
  22. TARCEVA [Suspect]
     Indication: LUNG SQUAMOUS CELL CARCINOMA STAGE IV
     Route: 048
     Dates: start: 20090226, end: 20090305

REACTIONS (5)
  - BLOOD PRESSURE DECREASED [None]
  - DIALYSIS [None]
  - INFECTION [None]
  - RENAL FAILURE ACUTE [None]
  - WHITE BLOOD CELL COUNT INCREASED [None]
